FAERS Safety Report 11430436 (Version 1)
Quarter: 2015Q3

REPORT INFORMATION
  Report Type: Spontaneous
  Country: US (occurrence: US)
  Receive Date: 20150828
  Receipt Date: 20150828
  Transmission Date: 20151125
  Serious: No
  Sender: FDA-Public Use
  Company Number: PHEH2015US003815

PATIENT
  Sex: Male

DRUGS (2)
  1. OXCARBAZEPINE. [Suspect]
     Active Substance: OXCARBAZEPINE
     Indication: BIPOLAR DISORDER
     Dosage: 1800 MG (900 MG QAM AND 900 MG QPM), DAILY
     Route: 065
  2. OXCARBAZEPINE. [Suspect]
     Active Substance: OXCARBAZEPINE
     Dosage: 1800 MG (900 MG QAM AND 900 MG EVERY AFTERNOON)
     Route: 065

REACTIONS (5)
  - Diplopia [Unknown]
  - Dehydration [Unknown]
  - Dysarthria [Unknown]
  - Ataxia [Unknown]
  - Slow speech [Unknown]

NARRATIVE: CASE EVENT DATE: 20150220
